FAERS Safety Report 5456634-9 (Version None)
Quarter: 2007Q3

REPORT INFORMATION
  Report Type: 
  Country: None (occurrence: None)
  Receive Date: 20070918
  Receipt Date: 20061117
  Transmission Date: 20080115
  Serious: No
  Sender: FDA-Public Use
  Company Number: US-ASTRAZENECA-2006UW25587

PATIENT
  Age: 68 Year
  Sex: Female
  Weight: 86.2 kg

DRUGS (4)
  1. SEROQUEL [Suspect]
     Indication: BIPOLAR DISORDER
     Route: 048
  2. NEURONTIN [Concomitant]
  3. CAPOTEN [Concomitant]
  4. REQUIP [Concomitant]

REACTIONS (3)
  - CYST [None]
  - DYSKINESIA [None]
  - ILL-DEFINED DISORDER [None]
